FAERS Safety Report 26067568 (Version 1)
Quarter: 2025Q4

REPORT INFORMATION
  Report Type: Report from Study
  Country: EU (occurrence: EU)
  Receive Date: 20251120
  Receipt Date: 20251120
  Transmission Date: 20260118
  Serious: Yes (Hospitalization)
  Sender: OCTAPHARMA
  Company Number: EU-OCTA-2025000638

PATIENT
  Age: 86 Year
  Sex: Male
  Weight: 75 kg

DRUGS (5)
  1. OCTAGAM IMMUNE GLOBULIN (HUMAN) [Suspect]
     Active Substance: HUMAN IMMUNOGLOBULIN G
     Indication: Secondary immunodeficiency
     Route: 042
     Dates: start: 20250623, end: 20250623
  2. ATORVASTATIN [Concomitant]
     Active Substance: ATORVASTATIN
     Indication: Product used for unknown indication
  3. Exetimibe [Concomitant]
     Indication: Product used for unknown indication
  4. IRBESARTAN [Concomitant]
     Active Substance: IRBESARTAN
     Indication: Product used for unknown indication
  5. NEBIVOLOL [Concomitant]
     Active Substance: NEBIVOLOL
     Indication: Product used for unknown indication

REACTIONS (2)
  - Rash [Not Recovered/Not Resolved]
  - Erythrodermic psoriasis [Recovered/Resolved]

NARRATIVE: CASE EVENT DATE: 20250703
